FAERS Safety Report 5493695-5 (Version None)
Quarter: 2007Q4

REPORT INFORMATION
  Report Type: 
  Country: None (occurrence: None)
  Receive Date: 20071023
  Receipt Date: 20071019
  Transmission Date: 20080405
  Serious: Yes (Death)
  Sender: FDA-Public Use
  Company Number: IT-ASTRAZENECA-2007SE05554

PATIENT
  Age: 30 Day
  Sex: Male

DRUGS (3)
  1. MERREM [Suspect]
     Indication: BACTERIAL SEPSIS
     Route: 065
     Dates: start: 20071010, end: 20071010
  2. BB-K8 [Concomitant]
     Dates: start: 20071010, end: 20071010
  3. ACTRAPID (INSULIN) [Concomitant]

REACTIONS (1)
  - DEATH [None]
